FAERS Safety Report 8822247 (Version 1)
Quarter: 2012Q4

REPORT INFORMATION
  Report Type: 
  Country: US (occurrence: US)
  Receive Date: 20121003
  Receipt Date: 20121003
  Transmission Date: 20130627
  Serious: No
  Sender: FDA-Public Use
  Company Number: US-PFIZER INC-2012244107

PATIENT
  Age: 64 Year
  Sex: Female
  Weight: 67.57 kg

DRUGS (8)
  1. CHANTIX [Suspect]
     Indication: SMOKING CESSATION THERAPY
     Dosage: 0.5 mg, 1x/day
     Dates: start: 20120822, end: 2012
  2. CHANTIX [Suspect]
     Dosage: 1.0 mg, 2x/day
     Dates: start: 2012, end: 201209
  3. SPIRIVA [Concomitant]
     Indication: CHRONIC OBSTRUCTIVE PULMONARY DISEASE
     Dosage: UNK, daily
  4. ADVAIR DISKUS [Concomitant]
     Indication: CHRONIC OBSTRUCTIVE PULMONARY DISEASE
     Dosage: UNK, daily
  5. CYMBALTA [Concomitant]
     Indication: NERVE INJURY
     Dosage: 60 mg, 1x/day
  6. CYMBALTA [Concomitant]
     Indication: PAIN
  7. CYMBALTA [Concomitant]
     Indication: DEPRESSION
  8. KLONOPIN [Concomitant]
     Indication: ANXIETY
     Dosage: UNK, daily

REACTIONS (2)
  - Headache [Recovering/Resolving]
  - Abnormal dreams [Recovered/Resolved]
